FAERS Safety Report 9703885 (Version 1)
Quarter: 2013Q4

REPORT INFORMATION
  Report Type: Spontaneous
  Country: US (occurrence: None)
  Receive Date: 20131121
  Receipt Date: 20131121
  Transmission Date: 20140711
  Serious: No
  Sender: FDA-Public Use
  Company Number: None

PATIENT
  Age: 37 Year
  Sex: Female
  Weight: 67.13 kg

DRUGS (1)
  1. BUPROPION [Suspect]
     Indication: DEPRESSION
     Dosage: 1 PILL  TWICE DAILY TAKEN BY MOUTH
     Route: 048
     Dates: start: 20130915, end: 20131120

REACTIONS (7)
  - Yawning [None]
  - Dry mouth [None]
  - Dry eye [None]
  - Tinnitus [None]
  - Tremor [None]
  - Decreased appetite [None]
  - Alopecia [None]
